FAERS Safety Report 10079993 (Version 1)
Quarter: 2014Q2

REPORT INFORMATION
  Report Type: Spontaneous
  Country: US (occurrence: US)
  Receive Date: 20140415
  Receipt Date: 20140415
  Transmission Date: 20141212
  Serious: No
  Sender: FDA-Public Use
  Company Number: US-ASTRAZENECA-2014SE22100

PATIENT
  Age: 69 Year
  Sex: Male

DRUGS (2)
  1. PRILOSEC OTC, FLAVOR UNKNOWN [Suspect]
     Indication: GASTROOESOPHAGEAL REFLUX DISEASE
     Route: 048
     Dates: start: 20140326, end: 20140326
  2. VYTORIN [Concomitant]
     Dosage: UNKNOWN

REACTIONS (3)
  - Accidental overdose [Unknown]
  - Somnolence [Unknown]
  - Inappropriate schedule of drug administration [Unknown]
